FAERS Safety Report 9425464 (Version 2)
Quarter: 2013Q3

REPORT INFORMATION
  Report Type: Report from Study
  Country: JP (occurrence: JP)
  Receive Date: 20130729
  Receipt Date: 20130904
  Transmission Date: 20140515
  Serious: Yes (Hospitalization)
  Sender: FDA-Public Use
  Company Number: JP-GILEAD-2013-0079927

PATIENT
  Age: 37 Year
  Sex: Male

DRUGS (12)
  1. EMTRICITABINE/TENOFOVIR DISOPROXIL FUMARATE [Suspect]
     Indication: HIV INFECTION
     Dosage: 1 DF, QD
     Route: 048
     Dates: start: 20121010, end: 20121022
  2. FLUCONAZOLE [Suspect]
     Indication: MENINGITIS CRYPTOCOCCAL
     Route: 048
     Dates: start: 20120921, end: 20121023
  3. KALETRA [Suspect]
     Indication: HIV INFECTION
     Route: 048
     Dates: start: 20121027, end: 20121112
  4. ISENTRESS [Concomitant]
     Indication: HIV INFECTION
     Route: 048
     Dates: start: 20121010, end: 20130116
  5. FLORID                             /00310801/ [Concomitant]
     Indication: ORAL CANDIDIASIS
     Route: 061
     Dates: start: 20120918, end: 20121023
  6. LANSOPRAZOLE [Concomitant]
     Indication: OESOPHAGITIS
     Route: 048
     Dates: start: 20120919
  7. CLARITH [Concomitant]
     Indication: MYCOBACTERIUM AVIUM COMPLEX INFECTION
     Route: 048
     Dates: start: 20121004, end: 20121023
  8. MYCOBUTIN [Concomitant]
     Indication: MYCOBACTERIUM AVIUM COMPLEX INFECTION
     Route: 048
     Dates: start: 20121004, end: 20121016
  9. MYCOBUTIN [Concomitant]
     Route: 048
     Dates: start: 20121017, end: 20121023
  10. NEUTROGIN [Concomitant]
     Indication: WHITE BLOOD CELL COUNT DECREASED
     Route: 041
     Dates: start: 20121009, end: 20121011
  11. FLAGYL                             /00012501/ [Concomitant]
     Indication: PSEUDOMEMBRANOUS COLITIS
     Route: 048
     Dates: start: 20121022, end: 20121029
  12. CLARIS [Concomitant]

REACTIONS (1)
  - Renal disorder [Recovering/Resolving]
